FAERS Safety Report 9444040 (Version 1)
Quarter: 2013Q3

REPORT INFORMATION
  Report Type: Spontaneous
  Country: US (occurrence: None)
  Receive Date: 20130806
  Receipt Date: 20130806
  Transmission Date: 20140515
  Serious: Yes (Death)
  Sender: FDA-Public Use
  Company Number: None

PATIENT
  Age: 88 Year
  Sex: Male

DRUGS (3)
  1. ZYTIGA [Suspect]
     Dosage: 1000MG QD ORAL
     Route: 048
     Dates: start: 20130405, end: 201307
  2. PLAVIX [Concomitant]
  3. PREDNISONE [Concomitant]

REACTIONS (1)
  - Death [None]
